FAERS Safety Report 21466461 (Version 1)
Quarter: 2022Q4

REPORT INFORMATION
  Report Type: Spontaneous
  Country: US (occurrence: None)
  Receive Date: 20221014
  Receipt Date: 20221014
  Transmission Date: 20230113
  Serious: Yes (Life-Threatening, Hospitalization)
  Sender: FDA-Public Use
  Company Number: None

PATIENT
  Age: 50 Year
  Sex: Male
  Weight: 106 kg

DRUGS (2)
  1. MOUNJARO [Suspect]
     Active Substance: TIRZEPATIDE
     Indication: Obesity
     Dosage: FREQUENCY : WEEKLY;?
     Route: 058
     Dates: start: 20220921, end: 20221013
  2. VALPROIC ACID [Suspect]
     Active Substance: VALPROIC ACID
     Dates: start: 20181012

REACTIONS (2)
  - Toxicity to various agents [None]
  - Drug interaction [None]

NARRATIVE: CASE EVENT DATE: 20221014
